FAERS Safety Report 5409667-2 (Version None)
Quarter: 2007Q3

REPORT INFORMATION
  Report Type: 
  Country: None (occurrence: None)
  Receive Date: 20070809
  Receipt Date: 20070730
  Transmission Date: 20080115
  Serious: Yes (Other)
  Sender: FDA-Public Use
  Company Number: US-ELI_LILLY_AND_COMPANY-US200705007381

PATIENT
  Sex: Female

DRUGS (4)
  1. HUMATROPE [Suspect]
     Indication: GROWTH HORMONE DEFICIENCY
     Dosage: 6 MG, DAILY (1/D)
     Route: 058
     Dates: start: 20070301
  2. ORTHO TRI-CYCLEN [Concomitant]
  3. DDAVP (NEEDS NO REFRIGERATION) [Concomitant]
  4. KEPPRA [Concomitant]

REACTIONS (1)
  - CONVULSION [None]
